FAERS Safety Report 8180995-3 (Version None)
Quarter: 2012Q1

REPORT INFORMATION
  Report Type: 
  Country: None (occurrence: None)
  Receive Date: 20120302
  Receipt Date: 20120228
  Transmission Date: 20120608
  Serious: Yes (Other)
  Sender: FDA-Public Use
  Company Number: US-GLAXOSMITHKLINE-A0968072A

PATIENT
  Age: 41 Year
  Sex: Female

DRUGS (6)
  1. NICODERM [Suspect]
     Indication: SMOKING CESSATION THERAPY
  2. ATACAND [Concomitant]
     Indication: HYPERTENSION
     Dosage: 10MG PER DAY
  3. TRAMADOL HCL [Concomitant]
     Dosage: 50MG AS REQUIRED
     Route: 048
  4. VOLTAREN [Concomitant]
  5. AMBIEN [Concomitant]
  6. METHADONE HCL [Concomitant]
     Dosage: 5MG THREE TIMES PER DAY

REACTIONS (5)
  - BURNS SECOND DEGREE [None]
  - FALL [None]
  - SPINAL FRACTURE [None]
  - BLISTER [None]
  - BACK PAIN [None]
